FAERS Safety Report 17838962 (Version 1)
Quarter: 2020Q2

REPORT INFORMATION
  Report Type: Spontaneous
  Country: US (occurrence: US)
  Receive Date: 20200528
  Receipt Date: 20200528
  Transmission Date: 20200714
  Serious: No
  Sender: FDA-Public Use
  Company Number: None

PATIENT
  Age: 73 Year
  Sex: Male
  Weight: 93 kg

DRUGS (13)
  1. METHYLPREDNISOLONE. [Concomitant]
     Active Substance: METHYLPREDNISOLONE
     Dates: start: 20200514, end: 20200525
  2. REMDESIVIR. [Suspect]
     Active Substance: REMDESIVIR
     Indication: COVID-19
     Route: 048
     Dates: start: 20200515, end: 20200519
  3. PRAZOSIN. [Concomitant]
     Active Substance: PRAZOSIN
     Dates: start: 20200518, end: 20200526
  4. TAMSULOSIN [Concomitant]
     Active Substance: TAMSULOSIN
     Dates: start: 20200513, end: 20200522
  5. MIRTAZAPINE. [Concomitant]
     Active Substance: MIRTAZAPINE
     Dates: start: 20200513, end: 20200527
  6. ASPIRIN. [Concomitant]
     Active Substance: ASPIRIN
     Dates: start: 20200514, end: 20200522
  7. GABAPENTIN. [Concomitant]
     Active Substance: GABAPENTIN
     Dates: start: 20200513, end: 20200527
  8. PROPOFOL. [Concomitant]
     Active Substance: PROPOFOL
     Dates: start: 20200518, end: 20200525
  9. ARIPIPRAZOLE. [Concomitant]
     Active Substance: ARIPIPRAZOLE
     Dates: start: 20200513, end: 20200526
  10. FENTANYL. [Concomitant]
     Active Substance: FENTANYL
     Dates: start: 20200518
  11. FAMOTIDINE. [Concomitant]
     Active Substance: FAMOTIDINE
     Dates: start: 20200518
  12. CEFEPIME [Concomitant]
     Active Substance: CEFEPIME HYDROCHLORIDE
     Dates: start: 20200518, end: 20200527
  13. ENOXAPARIN [Concomitant]
     Active Substance: ENOXAPARIN
     Dates: start: 20200513, end: 20200522

REACTIONS (1)
  - Aspartate aminotransferase increased [None]

NARRATIVE: CASE EVENT DATE: 20200519
